FAERS Safety Report 6163939-5 (Version None)
Quarter: 2009Q2

REPORT INFORMATION
  Report Type: 
  Country: None (occurrence: None)
  Receive Date: 20090422
  Receipt Date: 20090420
  Transmission Date: 20091009
  Serious: Yes (Death)
  Sender: FDA-Public Use
  Company Number: PHEH2009US02173

PATIENT
  Sex: Male

DRUGS (2)
  1. TRILEPTAL [Suspect]
     Indication: CONVULSION
     Dosage: 1200 MG, BID
     Route: 048
  2. KEPPRA [Concomitant]
     Indication: CONVULSION
     Dosage: UNK

REACTIONS (1)
  - NEOPLASM PROGRESSION [None]
